FAERS Safety Report 23289708 (Version 1)
Quarter: 2023Q4

REPORT INFORMATION
  Report Type: Spontaneous
  Country: US (occurrence: US)
  Receive Date: 20231212
  Receipt Date: 20231212
  Transmission Date: 20240110
  Serious: Yes (Other)
  Sender: FDA-Public Use
  Company Number: US-PFIZER INC-PV202300144309

PATIENT
  Age: 68 Year
  Sex: Female
  Weight: 75.1 kg

DRUGS (7)
  1. IBRANCE [Suspect]
     Active Substance: PALBOCICLIB
     Indication: Hormone receptor positive breast cancer
     Dosage: 125 MG, CYCLIC, TAKE 1 CAPSULE BY MOUTH FOR 21 DAY 7 DAYS OFF/ DAYS 1-21 Q (EVERY) 35 DAYS
     Route: 048
     Dates: start: 202101
  2. IBRANCE [Suspect]
     Active Substance: PALBOCICLIB
     Indication: Bone cancer
     Dosage: 125 MG, CYCLIC, DAYS 1-21 (EVERY 28 DAYS)
     Route: 048
  3. IBRANCE [Suspect]
     Active Substance: PALBOCICLIB
     Indication: Bone marrow disorder
     Dosage: 125 MG
     Route: 048
     Dates: start: 20220805
  4. IBRANCE [Suspect]
     Active Substance: PALBOCICLIB
     Indication: Chemotherapy
     Dosage: 100 MG, CYCLIC, ON DAYS 1-21, AND THEN OFF FOR 14 DAYS
     Route: 048
  5. IBRANCE [Suspect]
     Active Substance: PALBOCICLIB
     Indication: Invasive ductal breast carcinoma
  6. FASLODEX [Concomitant]
     Active Substance: FULVESTRANT
     Dosage: Q (EVERY) 28 DAYS
     Dates: start: 202101
  7. ANASTROZOLE [Concomitant]
     Active Substance: ANASTROZOLE
     Dosage: 1 MG PO DAILY
     Route: 048
     Dates: start: 202101, end: 20210506

REACTIONS (1)
  - Neutropenia [Unknown]
